FAERS Safety Report 24852803 (Version 4)
Quarter: 2025Q2

REPORT INFORMATION
  Report Type: Spontaneous
  Country: US (occurrence: US)
  Receive Date: 20250116
  Receipt Date: 20250604
  Transmission Date: 20250717
  Serious: No
  Sender: ALEXION PHARMACEUTICALS
  Company Number: US-AstraZeneca-CH-00785161AP

PATIENT

DRUGS (1)
  1. SYMBICORT [Suspect]
     Active Substance: BUDESONIDE\FORMOTEROL FUMARATE DIHYDRATE
     Indication: Asthma
     Dosage: 80 MICROGRAM, BID
     Route: 065

REACTIONS (5)
  - Device use issue [Unknown]
  - Asthma [Unknown]
  - Device malfunction [Unknown]
  - Dust allergy [Unknown]
  - Product dose omission issue [Unknown]
